FAERS Safety Report 8461564-4 (Version None)
Quarter: 2012Q2

REPORT INFORMATION
  Report Type: 
  Country: None (occurrence: None)
  Receive Date: 20120625
  Receipt Date: 20120615
  Transmission Date: 20120825
  Serious: Yes (Hospitalization, Other)
  Sender: FDA-Public Use
  Company Number: PHFR2011GB03867

PATIENT
  Sex: Male

DRUGS (3)
  1. CLOZARIL [Suspect]
     Indication: SCHIZOPHRENIA
     Route: 048
     Dates: start: 20010701
  2. CLOZARIL [Suspect]
     Dosage: 575 MG, UNK
     Route: 048
  3. CLOZARIL [Suspect]
     Dosage: 675 MG, UNK
     Dates: end: 20120601

REACTIONS (4)
  - BLOOD CREATINE PHOSPHOKINASE INCREASED [None]
  - PSYCHOTIC DISORDER [None]
  - FOOD AVERSION [None]
  - ANTIPSYCHOTIC DRUG LEVEL INCREASED [None]
